FAERS Safety Report 16720215 (Version 2)
Quarter: 2019Q4

REPORT INFORMATION
  Report Type: Report from Study
  Country: US (occurrence: US)
  Receive Date: 20190820
  Receipt Date: 20191004
  Transmission Date: 20200122
  Serious: Yes (Other)
  Sender: FDA-Public Use
  Company Number: US-BAYER-2019-151408

PATIENT
  Age: 56 Year
  Sex: Female

DRUGS (6)
  1. LORAZEPAM. [Concomitant]
     Active Substance: LORAZEPAM
  2. LISINOPRIL. [Concomitant]
     Active Substance: LISINOPRIL
  3. HYDROCHLOROTHIAZIDE. [Concomitant]
     Active Substance: HYDROCHLOROTHIAZIDE
  4. LOMOTIL [LOPERAMIDE HYDROCHLORIDE] [Concomitant]
  5. STIVARGA [Suspect]
     Active Substance: REGORAFENIB
     Indication: COLON CANCER
     Dosage: 120 MG, QD 21 DAYS ON/7 DAYS OFF
     Route: 048
     Dates: start: 20190722
  6. PROCHLORPERAZINE. [Concomitant]
     Active Substance: PROCHLORPERAZINE

REACTIONS (12)
  - Arthralgia [None]
  - Decreased appetite [None]
  - Arthritis [None]
  - Dry skin [None]
  - Weight decreased [None]
  - Peripheral swelling [None]
  - Erythema [Recovering/Resolving]
  - Urinary tract infection [Recovered/Resolved]
  - Blood pressure increased [None]
  - Neuropathy peripheral [None]
  - Gait disturbance [None]
  - Off label use [None]

NARRATIVE: CASE EVENT DATE: 201907
